FAERS Safety Report 9838881 (Version 1)
Quarter: 2014Q1

REPORT INFORMATION
  Report Type: Spontaneous
  Country: AT (occurrence: None)
  Receive Date: 20140116
  Receipt Date: 20140116
  Transmission Date: 20141002
  Serious: Yes (Hospitalization)
  Sender: FDA-Public Use
  Company Number: SYM-2014-14773

PATIENT
  Age: 79 Year
  Sex: Male

DRUGS (5)
  1. WELLBUTRIN XR (BUPROPION HYDROCHLORIDE) (TABLET-EXTENDED RELEASE) (BUPROPION HYDROCHLORIDE) [Suspect]
     Indication: DEPRESSION
     Dates: start: 20130627, end: 20130709
  2. MADOPAR (MADOPAR) (LEVODOPA, BENSERAZIDE HYDROCHLORIDE) [Concomitant]
  3. THROMBO ASS (ACETYLSALICYLIC ACID) (ACETYLSALICYLIC ACID) [Concomitant]
  4. LISINOPRIL + HYDROCHLOROTHIAZIDE (ZESTORETIC) (HYDROCHLOROTHIAZIDE, LISINOPRIL) [Concomitant]
  5. TEMESTA (LORAZEPAM) (LORAZEPAM) [Concomitant]

REACTIONS (1)
  - Drug eruption [None]
